FAERS Safety Report 6795242-4 (Version None)
Quarter: 2010Q2

REPORT INFORMATION
  Report Type: 
  Country: None (occurrence: None)
  Receive Date: 20100625
  Receipt Date: 20100616
  Transmission Date: 20101027
  Serious: Yes (Other)
  Sender: FDA-Public Use
  Company Number: AU-ASTRAZENECA-2010SE25247

PATIENT
  Age: 60 Year
  Sex: Female

DRUGS (5)
  1. ARIMIDEX [Suspect]
     Route: 048
     Dates: start: 20100507, end: 20100529
  2. METOPROLOL TARTRATE [Concomitant]
  3. EUROXIG [Concomitant]
  4. DIAMICRON [Concomitant]
  5. METFORMIN HCL [Concomitant]

REACTIONS (4)
  - AGGRESSION [None]
  - AGITATION [None]
  - HEADACHE [None]
  - NAUSEA [None]
